FAERS Safety Report 5634554-4 (Version None)
Quarter: 2008Q1

REPORT INFORMATION
  Report Type: 
  Country: None (occurrence: None)
  Receive Date: 20080222
  Receipt Date: 20080214
  Transmission Date: 20080703
  Serious: Yes (Other)
  Sender: FDA-Public Use
  Company Number: PHEH2008US00888

PATIENT
  Age: 47 Year
  Sex: Male

DRUGS (2)
  1. AREDIA [Suspect]
     Indication: MULTIPLE MYELOMA
     Dosage: UNK QMO
     Route: 042
  2. REVLIMID [Suspect]
     Indication: MULTIPLE MYELOMA
     Dosage: 25MG QD
     Route: 048
     Dates: start: 20071102

REACTIONS (2)
  - INJECTION SITE THROMBOSIS [None]
  - THROMBOPHLEBITIS SUPERFICIAL [None]
